FAERS Safety Report 15266406 (Version 1)
Quarter: 2018Q3

REPORT INFORMATION
  Report Type: Spontaneous
  Country: FR (occurrence: FR)
  Receive Date: 20180810
  Receipt Date: 20180810
  Transmission Date: 20181010
  Serious: Yes (Other)
  Sender: FDA-Public Use
  Company Number: FR-INDIVIOR LIMITED-INDV-113009-2018

PATIENT
  Sex: Male

DRUGS (3)
  1. SUBUTEX [Suspect]
     Active Substance: BUPRENORPHINE HYDROCHLORIDE
     Indication: PRODUCT USED FOR UNKNOWN INDICATION
     Dosage: UNK
     Route: 065
  2. ACTISKENAN [Suspect]
     Active Substance: MORPHINE SULFATE
     Indication: PRODUCT USED FOR UNKNOWN INDICATION
     Dosage: UNK
     Route: 042
  3. SKENAN [Suspect]
     Active Substance: MORPHINE SULFATE
     Indication: PRODUCT USED FOR UNKNOWN INDICATION
     Dosage: 120 MG, UNK
     Route: 042

REACTIONS (7)
  - Withdrawal syndrome [Recovered/Resolved]
  - Drug detoxification [Recovering/Resolving]
  - Drug diversion [Not Recovered/Not Resolved]
  - Drug abuse [Not Recovered/Not Resolved]
  - Lymphangitis [Recovered/Resolved]
  - Injection site induration [Recovered/Resolved]
  - Drug dependence [Not Recovered/Not Resolved]

NARRATIVE: CASE EVENT DATE: 2016
